FAERS Safety Report 13538835 (Version 2)
Quarter: 2017Q4

REPORT INFORMATION
  Report Type: Spontaneous
  Country: US (occurrence: US)
  Receive Date: 20170512
  Receipt Date: 20171121
  Transmission Date: 20180320
  Serious: No
  Sender: FDA-Public Use
  Company Number: US-JNJFOC-20170315352

PATIENT
  Sex: Male

DRUGS (16)
  1. RISPERDAL [Suspect]
     Active Substance: RISPERIDONE
     Indication: MANIA
     Dosage: IN VARYING DOSES OF 2 MG, 3 MG
     Route: 048
     Dates: start: 20101026, end: 20110304
  2. RISPERDAL [Suspect]
     Active Substance: RISPERIDONE
     Indication: BIPOLAR I DISORDER
     Dosage: IN VARYING DOSES OF 1 MG, 2 MG
     Route: 048
     Dates: start: 20110725, end: 20110808
  3. INVEGA [Suspect]
     Active Substance: PALIPERIDONE
     Indication: MANIA
     Route: 048
     Dates: end: 20120321
  4. INVEGA [Suspect]
     Active Substance: PALIPERIDONE
     Indication: BIPOLAR I DISORDER
     Route: 048
     Dates: end: 20120321
  5. INVEGA SUSTENNA [Suspect]
     Active Substance: PALIPERIDONE PALMITATE
     Indication: BIPOLAR I DISORDER
     Route: 030
     Dates: start: 20120320
  6. INVEGA [Suspect]
     Active Substance: PALIPERIDONE
     Indication: BIPOLAR I DISORDER
     Route: 048
     Dates: start: 20110825
  7. RISPERDAL [Suspect]
     Active Substance: RISPERIDONE
     Indication: MANIA
     Dosage: IN VARYING DOSES OF 1 MG, 2 MG, 3 MG
     Route: 048
     Dates: start: 20091213, end: 20091215
  8. RISPERDAL [Suspect]
     Active Substance: RISPERIDONE
     Indication: BIPOLAR I DISORDER
     Dosage: IN VARYING DOSES OF 2 MG, 3 MG
     Route: 048
     Dates: start: 20101026, end: 20110304
  9. INVEGA [Suspect]
     Active Substance: PALIPERIDONE
     Indication: MANIA
     Route: 048
     Dates: start: 20091214
  10. RISPERDAL [Suspect]
     Active Substance: RISPERIDONE
     Indication: MANIA
     Dosage: IN VARYING DOSES OF 1 MG, 2 MG
     Route: 048
     Dates: start: 20110725, end: 20110808
  11. INVEGA [Suspect]
     Active Substance: PALIPERIDONE
     Indication: BIPOLAR I DISORDER
     Route: 048
     Dates: start: 20091214
  12. INVEGA SUSTENNA [Suspect]
     Active Substance: PALIPERIDONE PALMITATE
     Indication: MANIA
     Route: 030
     Dates: start: 20120320
  13. INVEGA [Suspect]
     Active Substance: PALIPERIDONE
     Indication: MANIA
     Route: 048
     Dates: start: 20110825
  14. INVEGA SUSTENNA [Suspect]
     Active Substance: PALIPERIDONE PALMITATE
     Indication: MANIA
     Route: 030
     Dates: start: 20110825
  15. INVEGA SUSTENNA [Suspect]
     Active Substance: PALIPERIDONE PALMITATE
     Indication: BIPOLAR I DISORDER
     Route: 030
     Dates: start: 20110825
  16. RISPERDAL [Suspect]
     Active Substance: RISPERIDONE
     Indication: BIPOLAR I DISORDER
     Dosage: IN VARYING DOSES OF 1 MG, 2 MG, 3 MG
     Route: 048
     Dates: start: 20091213, end: 20091215

REACTIONS (2)
  - Emotional disorder [Unknown]
  - Gynaecomastia [Unknown]
